FAERS Safety Report 4346924-5 (Version None)
Quarter: 2004Q1

REPORT INFORMATION
  Report Type: 
  Country: None (occurrence: None)
  Receive Date: 20040329
  Receipt Date: 20031217
  Transmission Date: 20041129
  Serious: No
  Sender: FDA-Public Use
  Company Number: USA031254919

PATIENT
  Age: 8 Year
  Sex: Male
  Weight: 22 kg

DRUGS (3)
  1. STRATTERA [Suspect]
     Indication: ATTENTION DEFICIT/HYPERACTIVITY DISORDER
     Dosage: 25 MG/1DAY
     Dates: start: 20030301
  2. BENADRYL [Concomitant]
  3. MULTI-VITAMIN [Concomitant]

REACTIONS (1)
  - DRUG EFFECT DECREASED [None]
